FAERS Safety Report 4582579-2 (Version None)
Quarter: 2005Q1

REPORT INFORMATION
  Report Type: 
  Country: None (occurrence: None)
  Receive Date: 20050125
  Receipt Date: 20040901
  Transmission Date: 20050727
  Serious: No
  Sender: FDA-Public Use
  Company Number: USA040874228

PATIENT
  Age: 69 Year
  Sex: Female
  Weight: 71 kg

DRUGS (6)
  1. FORTEO [Suspect]
     Indication: COMPRESSION FRACTURE
     Dosage: 20 UG/1 DAY
     Dates: start: 20040725, end: 20040730
  2. EVISTA [Concomitant]
  3. PROTONIX [Concomitant]
  4. MIACALCIN [Concomitant]
  5. PROGESTERONE [Concomitant]
  6. TESTOSTERONE [Concomitant]

REACTIONS (7)
  - ANXIETY [None]
  - ASTHENIA [None]
  - HEART RATE INCREASED [None]
  - HEART RATE IRREGULAR [None]
  - MIDDLE INSOMNIA [None]
  - NAUSEA [None]
  - PALPITATIONS [None]
